FAERS Safety Report 10162684 (Version 4)
Quarter: 2014Q4

REPORT INFORMATION
  Report Type: Report from Study
  Country: FR (occurrence: FR)
  Receive Date: 20140509
  Receipt Date: 20141022
  Transmission Date: 20150528
  Serious: Yes (Hospitalization)
  Sender: FDA-Public Use
  Company Number: PHHY2013FR037442

PATIENT

DRUGS (4)
  1. SIMULECT [Suspect]
     Active Substance: BASILIXIMAB
     Indication: IMMUNOSUPPRESSION
     Dosage: 20 MG, UNK
     Dates: start: 20130313
  2. MYCOPHENOLATE MOFETIL SANDOZ [Suspect]
     Active Substance: MYCOPHENOLATE MOFETIL
     Indication: IMMUNOSUPPRESSION
     Dosage: 1000 MG, BID
     Dates: start: 20130313
  3. SIMULECT [Suspect]
     Active Substance: BASILIXIMAB
     Dosage: 20 MG, UNK
     Dates: start: 20130317
  4. PROGRAF [Suspect]
     Active Substance: TACROLIMUS\TACROLIMUS ANHYDROUS
     Indication: LIVER TRANSPLANT
     Dosage: 2 MG, BID
     Route: 048
     Dates: start: 20130317

REACTIONS (4)
  - Hepatic encephalopathy [Not Recovered/Not Resolved]
  - Coma [Not Recovered/Not Resolved]
  - Leukoencephalopathy [Not Recovered/Not Resolved]
  - Fahr^s disease [Not Recovered/Not Resolved]

NARRATIVE: CASE EVENT DATE: 20130324
